FAERS Safety Report 8099721-1 (Version None)
Quarter: 2012Q1

REPORT INFORMATION
  Report Type: 
  Country: None (occurrence: None)
  Receive Date: 20120129
  Receipt Date: 20111024
  Transmission Date: 20120608
  Serious: No
  Sender: FDA-Public Use
  Company Number: US-ABBOTT-11P-163-0852095-00

PATIENT
  Age: 47 Year
  Sex: Female

DRUGS (7)
  1. LEXAPRO [Concomitant]
     Indication: PRODUCT USED FOR UNKNOWN INDICATION
     Dosage: DAILY
  2. HUMIRA [Suspect]
     Indication: RHEUMATOID ARTHRITIS
     Dates: start: 20110805, end: 20110916
  3. HYDROCODONE BITARTRATE [Concomitant]
     Indication: PRODUCT USED FOR UNKNOWN INDICATION
     Dosage: 5/500 PRN
  4. LAFLUNOMIDE [Concomitant]
     Indication: PRODUCT USED FOR UNKNOWN INDICATION
     Dosage: DAILY
  5. GUMMIE CALCIUM WITH VIT D [Concomitant]
     Indication: PRODUCT USED FOR UNKNOWN INDICATION
  6. NAPROSYN [Concomitant]
     Indication: PRODUCT USED FOR UNKNOWN INDICATION
  7. GUMMIE VITAMIN [Concomitant]
     Indication: PRODUCT USED FOR UNKNOWN INDICATION

REACTIONS (11)
  - INJECTION SITE SWELLING [None]
  - VAGINAL HAEMORRHAGE [None]
  - CERVIX HAEMORRHAGE UTERINE [None]
  - INJECTION SITE PAIN [None]
  - FALL [None]
  - NERVE COMPRESSION [None]
  - DYSURIA [None]
  - URINARY TRACT INFECTION [None]
  - BLOOD URINE PRESENT [None]
  - ABDOMINAL PAIN [None]
  - NERVE BLOCK [None]
